FAERS Safety Report 24559473 (Version 1)
Quarter: 2024Q4

REPORT INFORMATION
  Report Type: Report from Study
  Country: ZA (occurrence: ZA)
  Receive Date: 20241029
  Receipt Date: 20241029
  Transmission Date: 20250115
  Serious: Yes (Hospitalization)
  Sender: ABBVIE
  Company Number: ZA-ABBOTT-2024A-1390479

PATIENT
  Age: 54 Year
  Sex: Male

DRUGS (10)
  1. CREON [Suspect]
     Active Substance: PANCRELIPASE AMYLASE\PANCRELIPASE LIPASE\PANCRELIPASE PROTEASE
     Indication: Pancreatic failure
     Dosage: TAKE ONE CAPSULE THREE TIMES A DAY?25000
     Route: 048
  2. CALCIUM\MENAQUINONE 6\VITAMIN D [Concomitant]
     Active Substance: CALCIUM\MENAQUINONE 6\VITAMIN D
     Indication: Product used for unknown indication
     Dosage: TAKE ONE TABLET TWICE A DAY
     Route: 048
  3. CALCIUM\MENAQUINONE 6\VITAMIN D [Concomitant]
     Active Substance: CALCIUM\MENAQUINONE 6\VITAMIN D
     Indication: Product used for unknown indication
     Dosage: TAKE ONE TABLET DAILY
     Route: 048
  4. PREDNISONE [Concomitant]
     Active Substance: PREDNISONE
     Indication: Product used for unknown indication
     Dosage: 5 MG TAKE TWO TABLETS TWICE A DAY
     Route: 048
  5. DIETARY SUPPLEMENT\HERBALS [Concomitant]
     Active Substance: DIETARY SUPPLEMENT\HERBALS
     Indication: Product used for unknown indication
     Dosage: TAKE ONE TABLET THREE TIMES A DAY
     Route: 048
  6. FEXO [Concomitant]
     Indication: Hypersensitivity
     Dosage: 180 MG TAKE ONE TABLET DAILY
     Route: 048
  7. OMEPRAZOLE [Concomitant]
     Active Substance: OMEPRAZOLE
     Indication: Ulcer
     Dosage: 20 MG TAKE ONE CAPSULE IN THE MORNING
     Route: 048
  8. ELOZART [Concomitant]
     Indication: Hypersensitivity
     Dosage: APPLY TWICE A DAY
     Route: 061
  9. Cifran [Concomitant]
     Indication: Product used for unknown indication
     Dosage: 500 MG TAKE ONE TABLET TWICE A DAY
     Route: 048
  10. Cifran [Concomitant]
     Indication: Product used for unknown indication
     Dosage: 250 MG TAKE ONE TABLET TWICE A DAY
     Route: 048

REACTIONS (1)
  - Surgery [Unknown]
